FAERS Safety Report 19861366 (Version 1)
Quarter: 2021Q3

REPORT INFORMATION
  Report Type: Spontaneous
  Country: GB (occurrence: GB)
  Receive Date: 20210920
  Receipt Date: 20210920
  Transmission Date: 20211014
  Serious: Yes (Other)
  Sender: FDA-Public Use
  Company Number: GB-PFIZER INC-202101168543

PATIENT
  Age: 79 Year
  Sex: Female
  Weight: 78 kg

DRUGS (23)
  1. BISACODYL. [Concomitant]
     Active Substance: BISACODYL
     Dosage: 1 DF, 1X/DAY (TAKE ONE EACH NIGHT)
     Dates: start: 20210615
  2. METRONIDAZOLE. [Concomitant]
     Active Substance: METRONIDAZOLE
     Dosage: 1 DF, 3X/DAY
     Dates: start: 20210618, end: 20210625
  3. MOVICOL [Concomitant]
     Active Substance: POLYETHYLENE GLYCOL 3350\POTASSIUM CHLORIDE\SODIUM BICARBONATE\SODIUM CHLORIDE
     Dosage: 1 DF, 2X/DAY
     Dates: start: 20210317
  4. PHENOXYMETHYLPENICILLIN [Concomitant]
     Active Substance: PENICILLIN V
     Dosage: 2 DF, 2X/DAY
     Dates: start: 20210317
  5. PREDNISOLONE ACETATE. [Concomitant]
     Active Substance: PREDNISOLONE ACETATE
     Dosage: ONE DROP 2?4 TIMES/DAY
     Dates: start: 20210317
  6. ACICLOVIR [Concomitant]
     Active Substance: ACYCLOVIR
     Dosage: 1 DF, 2X/DAY
     Dates: start: 20210317
  7. RIVAROXABAN [Concomitant]
     Active Substance: RIVAROXABAN
     Dosage: 1 DF, 1X/DAY
     Dates: start: 20210317
  8. ADCAL [CALCIUM CARBONATE] [Concomitant]
     Dosage: 2 DF, 2X/DAY
     Dates: start: 20210317
  9. CYCLIZINE [Concomitant]
     Active Substance: CYCLIZINE
     Dosage: 1 DF, 2X/DAY
     Dates: start: 20210317
  10. LANSOPRAZOLE. [Concomitant]
     Active Substance: LANSOPRAZOLE
     Dosage: 1 DF, 1X/DAY (TAKE ONE ONCE DAILY)
     Dates: start: 20210317
  11. MIDAZOLAM. [Concomitant]
     Active Substance: MIDAZOLAM
     Indication: SEIZURE
     Dosage: 5 MG, AS NEEDED
     Route: 030
     Dates: start: 20210701, end: 20210706
  12. ZOMORPH [Concomitant]
     Active Substance: MORPHINE SULFATE
     Dosage: 2 DF, 2X/DAY
     Dates: start: 20210317
  13. DEXAMETHASONE. [Concomitant]
     Active Substance: DEXAMETHASONE
     Dosage: USE AS DIRECTED
     Dates: start: 20210317
  14. LEVETIRACETAM. [Concomitant]
     Active Substance: LEVETIRACETAM
     Dosage: 1 DF TO BE TAKEN TWICE DAILY
     Dates: start: 20210317
  15. MIDAZOLAM. [Concomitant]
     Active Substance: MIDAZOLAM
     Dosage: 5 MG, AS NEEDED
     Route: 058
     Dates: start: 20210701, end: 20210706
  16. SPIRONOLACTONE. [Suspect]
     Active Substance: SPIRONOLACTONE
     Dosage: 25 MG, 1X/DAY
     Dates: start: 20210805
  17. ALENDRONIC ACID [Concomitant]
     Active Substance: ALENDRONIC ACID
     Dosage: 1 DF, WEEKLY
     Dates: start: 20210317
  18. FLUCLOXACILLIN [Concomitant]
     Active Substance: FLUCLOXACILLIN
     Dosage: 1 DF, 4X/DAY
     Dates: start: 20210609, end: 20210616
  19. FUROSEMIDE. [Concomitant]
     Active Substance: FUROSEMIDE
     Dosage: 1 DF, 1X/DAY (TAKE ONE EACH MORNING)
     Dates: start: 20210729, end: 20210826
  20. MIDAZOLAM. [Concomitant]
     Active Substance: MIDAZOLAM
     Dosage: 10 MG, AS NEEDED
     Route: 058
     Dates: start: 20210701, end: 20210706
  21. LISINOPRIL. [Concomitant]
     Active Substance: LISINOPRIL
     Dosage: 1 DF, 1X/DAY
     Dates: start: 20210317
  22. MIDAZOLAM. [Concomitant]
     Active Substance: MIDAZOLAM
     Dosage: 10 MG, AS NEEDED
     Route: 030
     Dates: start: 20210701, end: 20210706
  23. MORPHINE SULFATE. [Concomitant]
     Active Substance: MORPHINE SULFATE
     Indication: PAIN
     Dosage: 5ML, AS NEEDED
     Dates: start: 20210317

REACTIONS (2)
  - Pruritus [Unknown]
  - Rash [Recovering/Resolving]

NARRATIVE: CASE EVENT DATE: 20210901
